FAERS Safety Report 9247321 (Version 1)
Quarter: 2013Q2

REPORT INFORMATION
  Report Type: Spontaneous
  Country: US (occurrence: US)
  Receive Date: 20130423
  Receipt Date: 20130423
  Transmission Date: 20140414
  Serious: Yes (Hospitalization)
  Sender: FDA-Public Use
  Company Number: US-JNJFOC-20130408252

PATIENT
  Age: 41 Year
  Sex: Male
  Weight: 113.4 kg

DRUGS (1)
  1. REMICADE [Suspect]
     Indication: COLITIS ULCERATIVE
     Dosage: INITIATED IN APR/MAY-2012
     Route: 042
     Dates: start: 2012

REACTIONS (8)
  - Scrotal abscess [Recovered/Resolved]
  - Large intestine polyp [Recovered/Resolved]
  - Intestinal obstruction [Recovered/Resolved]
  - Crohn^s disease [Not Recovered/Not Resolved]
  - Gastric infection [Recovered/Resolved]
  - Malaise [Recovered/Resolved]
  - Acne [Unknown]
  - Alopecia [Recovered/Resolved]
